FAERS Safety Report 23759401 (Version 2)
Quarter: 2024Q2

REPORT INFORMATION
  Report Type: Report from Study
  Country: CA (occurrence: CA)
  Receive Date: 20240418
  Receipt Date: 20240422
  Transmission Date: 20240716
  Serious: Yes (Other)
  Sender: FDA-Public Use
  Company Number: CA-002147023-NVSC2020CA347333

PATIENT
  Age: 85 Year
  Sex: Male

DRUGS (5)
  1. ERELZI [Suspect]
     Active Substance: ETANERCEPT-SZZS
     Indication: Rheumatoid arthritis
     Dosage: 50MG SC WEEKLY;WEEKLY
     Route: 058
     Dates: start: 20201224
  2. METHOTREXATE [Concomitant]
     Active Substance: METHOTREXATE
     Indication: Product used for unknown indication
     Dosage: UNK
     Route: 058
     Dates: start: 2019, end: 2020
  3. PREDNISONE [Concomitant]
     Active Substance: PREDNISONE
     Indication: Product used for unknown indication
     Dosage: UNK
     Route: 048
     Dates: start: 2020
  4. TYLENOL EXTRA STRENGTH [Concomitant]
     Active Substance: ACETAMINOPHEN
     Indication: Product used for unknown indication
     Route: 048
  5. VOLTAREN [Concomitant]
     Active Substance: DICLOFENAC SODIUM
     Indication: Product used for unknown indication
     Route: 061

REACTIONS (7)
  - Depressed level of consciousness [Unknown]
  - Pneumonia [Unknown]
  - Dyspnoea [Unknown]
  - Gait disturbance [Unknown]
  - Asthenia [Unknown]
  - Product packaging difficult to open [Unknown]
  - Device issue [Unknown]

NARRATIVE: CASE EVENT DATE: 20201230
